FAERS Safety Report 13032908 (Version 1)
Quarter: 2016Q4

REPORT INFORMATION
  Report Type: Spontaneous
  Country: US (occurrence: US)
  Receive Date: 20161215
  Receipt Date: 20161215
  Transmission Date: 20170207
  Serious: No
  Sender: FDA-Public Use
  Company Number: US-BION-20160605

PATIENT
  Age: 33 Year
  Sex: Female
  Weight: 52.62 kg

DRUGS (2)
  1. HIGH VITAMIN SUPPLEMENT FOR PREGNANCY [Concomitant]
  2. PROGESTERONE. [Suspect]
     Active Substance: PROGESTERONE
     Indication: HIGH RISK PREGNANCY
     Dosage: 200 MG; 2X/DAY; VAGINAL

REACTIONS (4)
  - Vaginal discharge [Unknown]
  - Stress [Unknown]
  - Incorrect route of drug administration [Unknown]
  - Product use issue [Unknown]
